FAERS Safety Report 10024104 (Version 1)
Quarter: 2014Q1

REPORT INFORMATION
  Report Type: Spontaneous
  Country: US (occurrence: None)
  Receive Date: 20140318
  Receipt Date: 20140318
  Transmission Date: 20141002
  Serious: Yes (Other)
  Sender: FDA-Public Use
  Company Number: None

PATIENT
  Age: 17 Year
  Sex: Male
  Weight: 39.7 kg

DRUGS (22)
  1. POLYMYXIN B [Suspect]
     Indication: CYSTIC FIBROSIS
     Dates: start: 20140311, end: 20140311
  2. CALCITROL [Concomitant]
  3. DORNASE ALFA [Concomitant]
  4. ESOMEPRAZOLE [Concomitant]
  5. FLUTICASONE NASAL SPRAY [Concomitant]
  6. LORATADINE [Concomitant]
  7. MIRTAZAPINE [Concomitant]
  8. POTASSIUM CHLORIDE [Concomitant]
  9. XOPENEX [Concomitant]
  10. MULTIVITAMIN [Concomitant]
  11. PANCRELIPASE [Concomitant]
  12. PHYTONADIONE [Concomitant]
  13. PIPERACILLIN-TAZOBACTAM [Concomitant]
  14. MIRALAX [Concomitant]
  15. PROPAANOLOL [Concomitant]
  16. SODIUM CHLORIDE [Concomitant]
  17. TOBRAMYCIN [Concomitant]
  18. URSODIOL [Concomitant]
  19. VITAMIN A [Concomitant]
  20. VITAMIN E [Concomitant]
  21. IBUPROFEN [Concomitant]
  22. DIPHENHYDRAMINE [Concomitant]

REACTIONS (4)
  - Infusion site reaction [None]
  - Asthenia [None]
  - Paraesthesia [None]
  - Headache [None]
